FAERS Safety Report 13491924 (Version 1)
Quarter: 2017Q2

REPORT INFORMATION
  Report Type: Spontaneous
  Country: CN (occurrence: US)
  Receive Date: 20170427
  Receipt Date: 20170427
  Transmission Date: 20170830
  Serious: Yes (Hospitalization)
  Sender: FDA-Public Use
  Company Number: CN-CORDEN PHARMA LATINA S.P.A.-US-2017COR000109

PATIENT
  Age: 21 Month
  Sex: Male

DRUGS (5)
  1. ETOPOSIDE. [Suspect]
     Active Substance: ETOPOSIDE
     Indication: NEPHROBLASTOMA
     Dosage: 100 MG/M2, DAY 1 TO DAY 5
     Dates: start: 201303
  2. ACTINOMYCIN D [Suspect]
     Active Substance: DACTINOMYCIN
     Indication: NEPHROBLASTOMA
     Dosage: 15 ?G/KG, DAY 1 TO DAY 5
     Dates: start: 201303
  3. CISPLATIN. [Suspect]
     Active Substance: CISPLATIN
     Indication: NEPHROBLASTOMA
     Dosage: 20 MG/M2, DAY 1 TO DAY 5
     Dates: start: 201303
  4. VINCRISTINE [Suspect]
     Active Substance: VINCRISTINE
     Indication: NEPHROBLASTOMA
     Dosage: 1.50 MG/M2, DAY 1
     Dates: start: 201303
  5. PIRARUBICIN [Suspect]
     Active Substance: PIRARUBICIN
     Indication: NEPHROBLASTOMA
     Dosage: 50 MG/M2, DAY 1
     Dates: start: 201303

REACTIONS (1)
  - Acute lymphocytic leukaemia [Unknown]
